FAERS Safety Report 9362580 (Version 1)
Quarter: 2013Q2

REPORT INFORMATION
  Report Type: Spontaneous
  Country: US (occurrence: US)
  Receive Date: 20130622
  Receipt Date: 20130622
  Transmission Date: 20140414
  Serious: No
  Sender: FDA-Public Use
  Company Number: US-US-EMD SERONO, INC.-7155793

PATIENT
  Sex: Female
  Weight: 81 kg

DRUGS (7)
  1. REBIF [Suspect]
     Indication: PRODUCT USED FOR UNKNOWN INDICATION
     Route: 058
  2. RITALIN [Concomitant]
     Indication: PRODUCT USED FOR UNKNOWN INDICATION
  3. LORAZEPAM [Concomitant]
     Indication: PRODUCT USED FOR UNKNOWN INDICATION
  4. PROZAC [Concomitant]
     Indication: PRODUCT USED FOR UNKNOWN INDICATION
  5. FISH OIL [Concomitant]
     Indication: PRODUCT USED FOR UNKNOWN INDICATION
  6. VITAMIN A [Concomitant]
     Indication: PRODUCT USED FOR UNKNOWN INDICATION
  7. VITAMIN D2 [Concomitant]
     Indication: PRODUCT USED FOR UNKNOWN INDICATION
     Route: 048

REACTIONS (6)
  - Diplopia [Unknown]
  - Memory impairment [Unknown]
  - Balance disorder [Unknown]
  - Muscle spasticity [Unknown]
  - Vision blurred [Unknown]
  - Fatigue [Unknown]
